FAERS Safety Report 10572554 (Version 2)
Quarter: 2014Q4

REPORT INFORMATION
  Report Type: Spontaneous
  Country: SE (occurrence: SE)
  Receive Date: 20141110
  Receipt Date: 20141121
  Transmission Date: 20150529
  Serious: Yes (Death)
  Sender: FDA-Public Use
  Company Number: SE-BRISTOL-MYERS SQUIBB COMPANY-21550793

PATIENT
  Age: 69 Year
  Sex: Male

DRUGS (7)
  1. ADALAT [Concomitant]
     Active Substance: NIFEDIPINE
  2. SPIRONOLACTONE. [Concomitant]
     Active Substance: SPIRONOLACTONE
  3. METOPROLOL [Concomitant]
     Active Substance: METOPROLOL
  4. OMEPRAZOLE. [Concomitant]
     Active Substance: OMEPRAZOLE
  5. ENALAPRIL [Concomitant]
     Active Substance: ENALAPRIL
  6. METFORMIN [Concomitant]
     Active Substance: METFORMIN HYDROCHLORIDE
  7. ELIQUIS [Suspect]
     Active Substance: APIXABAN
     Dosage: FILM COATED TABLET
     Route: 048
     Dates: start: 20140811, end: 20140905

REACTIONS (1)
  - Sudden cardiac death [Fatal]
